FAERS Safety Report 8799485 (Version 1)
Quarter: 2012Q4

REPORT INFORMATION
  Report Type: 
  Country: US (occurrence: US)
  Receive Date: 20120919
  Receipt Date: 20120919
  Transmission Date: 20130627
  Serious: No
  Sender: FDA-Public Use
  Company Number: US-PFIZER INC-2012230914

PATIENT
  Age: 46 Year
  Sex: Female
  Weight: 87.53 kg

DRUGS (2)
  1. CHANTIX [Suspect]
     Indication: SMOKING CESSATION THERAPY
     Dosage: UNK
     Dates: start: 200710, end: 2008
  2. AZOR [Concomitant]
     Indication: HYPERTENSION
     Dosage: 45 mg, daily

REACTIONS (4)
  - Nausea [Recovered/Resolved]
  - Abnormal dreams [Unknown]
  - Abdominal pain upper [Recovered/Resolved]
  - Abdominal discomfort [Recovered/Resolved]
